FAERS Safety Report 24759235 (Version 1)
Quarter: 2024Q4

REPORT INFORMATION
  Report Type: Spontaneous
  Country: SY (occurrence: SY)
  Receive Date: 20241220
  Receipt Date: 20241220
  Transmission Date: 20250114
  Serious: Yes (Other)
  Sender: RANBAXY
  Company Number: SY-SUN PHARMACEUTICAL INDUSTRIES LTD-2024R1-485581

PATIENT
  Age: 26 Year
  Sex: Female

DRUGS (4)
  1. ATORVASTATIN [Suspect]
     Active Substance: ATORVASTATIN
     Indication: Product used for unknown indication
     Dosage: UNK
     Route: 065
  2. ASPIRIN [Suspect]
     Active Substance: ASPIRIN
     Indication: Product used for unknown indication
     Dosage: UNK
     Route: 065
  3. MAGNESIUM SULFATE [Suspect]
     Active Substance: MAGNESIUM SULFATE
     Indication: Pre-eclampsia
     Dosage: UNK
     Route: 065
  4. NEOSTIGMINE [Suspect]
     Active Substance: NEOSTIGMINE
     Indication: Myasthenia gravis
     Dosage: UNK
     Route: 030

REACTIONS (3)
  - Exposure during pregnancy [Unknown]
  - Condition aggravated [Unknown]
  - Myasthenia gravis [Unknown]
